FAERS Safety Report 10989775 (Version 1)
Quarter: 2015Q1

REPORT INFORMATION
  Report Type: Spontaneous
  Country: US (occurrence: None)
  Receive Date: 20150326
  Receipt Date: 20150326
  Transmission Date: 20150721
  Serious: No
  Sender: FDA-Public Use
  Company Number: 1000074818

PATIENT
  Age: 93 Year
  Sex: Male

DRUGS (6)
  1. VIGRAN (VIGRAN) [Concomitant]
  2. LINZESS [Suspect]
     Active Substance: LINACLOTIDE
     Indication: CONSTIPATION
     Dosage: 290 MCG (290 MCG, 1 IN 1 D)
     Dates: start: 20150205, end: 20150209
  3. MACROGOL (MACROGOL) [Concomitant]
  4. LINZESS [Suspect]
     Active Substance: LINACLOTIDE
     Indication: CONSTIPATION
     Dosage: 145 MCG (145 MCG, 1)
     Dates: start: 20150128
  5. OMEPRAZOLE (OMEPRAZOLE) [Concomitant]
     Active Substance: OMEPRAZOLE
  6. MAGNESIUM (MAGNESIUM) [Concomitant]
     Active Substance: MAGNESIUM

REACTIONS (3)
  - Drug ineffective [None]
  - Palpitations [None]
  - Intentional product misuse [None]
